FAERS Safety Report 4756164-3 (Version None)
Quarter: 2005Q3

REPORT INFORMATION
  Report Type: 
  Country: None (occurrence: None)
  Receive Date: 20050829
  Receipt Date: 20050829
  Transmission Date: 20060218
  Serious: Yes (Life-Threatening)
  Sender: FDA-Public Use
  Company Number: None

PATIENT
  Age: 13 Year
  Sex: Male
  Weight: 40.8237 kg

DRUGS (1)
  1. ZOLOFT [Suspect]
     Indication: GENERALISED ANXIETY DISORDER
     Dosage: 1/2 TABLET DAILY
     Dates: start: 20050810, end: 20050826

REACTIONS (1)
  - DRUG PRESCRIBING ERROR [None]
